FAERS Safety Report 7191516-6 (Version None)
Quarter: 2010Q4

REPORT INFORMATION
  Report Type: 
  Country: None (occurrence: None)
  Receive Date: 20101223
  Receipt Date: 20101208
  Transmission Date: 20110411
  Serious: Yes (Other)
  Sender: FDA-Public Use
  Company Number: US-ROCHE-727338

PATIENT
  Sex: Female
  Weight: 59 kg

DRUGS (5)
  1. ACCUTANE [Suspect]
     Indication: ACNE
     Route: 065
     Dates: start: 19980501, end: 19981001
  2. ACCUTANE [Suspect]
     Route: 065
     Dates: start: 20000329, end: 20001026
  3. ACCUTANE [Suspect]
     Route: 065
     Dates: start: 20010101
  4. ACCUTANE [Suspect]
     Route: 065
     Dates: start: 20020102, end: 20020601
  5. BIRTH CONTROL PILL [Concomitant]

REACTIONS (8)
  - CHEILITIS [None]
  - COLITIS ULCERATIVE [None]
  - CROHN'S DISEASE [None]
  - DEPRESSION [None]
  - GASTROINTESTINAL INJURY [None]
  - INFLAMMATORY BOWEL DISEASE [None]
  - INTESTINAL OBSTRUCTION [None]
  - LARGE INTESTINE PERFORATION [None]
